FAERS Safety Report 20095375 (Version 2)
Quarter: 2022Q4

REPORT INFORMATION
  Report Type: Spontaneous
  Country: US (occurrence: US)
  Receive Date: 20211122
  Receipt Date: 20221013
  Transmission Date: 20230113
  Serious: Yes (Death, Other)
  Sender: FDA-Public Use
  Company Number: US-SA-SAC20211118000160

PATIENT
  Age: 46 Year
  Sex: Male

DRUGS (2)
  1. ZANTAC [Suspect]
     Active Substance: RANITIDINE HYDROCHLORIDE
     Indication: Dyspepsia
     Dosage: UNK UNK, QD
     Dates: start: 199501, end: 201912
  2. ZANTAC [Suspect]
     Active Substance: RANITIDINE HYDROCHLORIDE
     Indication: Hyperchlorhydria

REACTIONS (5)
  - Lung neoplasm malignant [Fatal]
  - Brain neoplasm malignant [Fatal]
  - Musculoskeletal cancer [Fatal]
  - Oesophageal carcinoma [Fatal]
  - Metastases to liver [Fatal]

NARRATIVE: CASE EVENT DATE: 20100101
